FAERS Safety Report 9327908 (Version 1)
Quarter: 2013Q2

REPORT INFORMATION
  Report Type: Spontaneous
  Country: US (occurrence: US)
  Receive Date: 20130604
  Receipt Date: 20130604
  Transmission Date: 20140414
  Serious: No
  Sender: FDA-Public Use
  Company Number: US-SANOFI-AVENTIS-2012SA040808

PATIENT
  Sex: 0

DRUGS (1)
  1. LANTUS [Suspect]
     Indication: TYPE 2 DIABETES MELLITUS
     Route: 058

REACTIONS (5)
  - Hunger [Unknown]
  - Fatigue [Unknown]
  - Hypotonia [Unknown]
  - Weight increased [Recovering/Resolving]
  - Diabetes mellitus inadequate control [Unknown]
